FAERS Safety Report 24703610 (Version 1)
Quarter: 2024Q4

REPORT INFORMATION
  Report Type: Spontaneous
  Country: GB (occurrence: GB)
  Receive Date: 20241206
  Receipt Date: 20241206
  Transmission Date: 20250114
  Serious: Yes (Other)
  Sender: ALKEM
  Company Number: None

PATIENT
  Age: 68 Year
  Sex: Male

DRUGS (11)
  1. MYCOPHENOLATE MOFETIL [Suspect]
     Active Substance: MYCOPHENOLATE MOFETIL
     Indication: Product used for unknown indication
     Dosage: 1000 MILLIGRAM, QD (TABLET)
     Route: 065
  2. Hylo-forte (Sodium hyaluronate) [Concomitant]
     Indication: Product used for unknown indication
     Dosage: 0.2 PERCENT, EYE DROPS (PRESERVATIVE FREE)
     Route: 065
     Dates: start: 20240104
  3. RAMIPRIL [Concomitant]
     Active Substance: RAMIPRIL
     Indication: Product used for unknown indication
     Dosage: 10 MILLIGRAM, QD, CAPSULE
     Route: 065
     Dates: start: 20240322
  4. METFORMIN [Concomitant]
     Active Substance: METFORMIN HYDROCHLORIDE
     Indication: Product used for unknown indication
     Dosage: 500 MILLIGRAM, QD/ 5ML (ORAL SOLUTION)
     Route: 065
     Dates: start: 20240214
  5. FOLIC ACID [Concomitant]
     Active Substance: FOLIC ACID
     Indication: Product used for unknown indication
     Dosage: 5 MILLIGRAM, QD (EXCEPT ON DAY OF METHOTREXATE) (TABLET)
     Route: 065
  6. ATORVASTATIN [Concomitant]
     Active Substance: ATORVASTATIN
     Indication: Product used for unknown indication
     Dosage: 40 MILLIGRAM, QD (TABLET)
     Route: 065
     Dates: start: 20240105
  7. LEVOTHYROXINE SODIUM [Concomitant]
     Active Substance: LEVOTHYROXINE SODIUM
     Indication: Product used for unknown indication
     Dosage: 150 MICROGRAM, QD (MORNING 50UG AND 100UG TABLET)
     Route: 065
     Dates: start: 20240102
  8. METHOTREXATE [Concomitant]
     Active Substance: METHOTREXATE
     Indication: Product used for unknown indication
     Dosage: 15 MILLIGRAM, 1 WEEK (TABLET)
     Route: 065
  9. DOXYCYCLINE [Concomitant]
     Active Substance: DOXYCYCLINE
     Indication: Product used for unknown indication
     Dosage: 100 MILLIGRAM, QD (CAPSULE)
     Route: 065
     Dates: start: 20240102
  10. AMLODIPINE [Concomitant]
     Active Substance: AMLODIPINE BESYLATE
     Indication: Product used for unknown indication
     Dosage: 5 MILLIGRAM, QD (TABLET)
     Route: 065
     Dates: start: 20240322
  11. BETAMETHASONE [Concomitant]
     Active Substance: BETAMETHASONE
     Indication: Product used for unknown indication
     Dosage: 500 MICROGRAM, PRN (AS NECESSARY) (TABLET)
     Route: 065

REACTIONS (1)
  - Hypokalaemia [Recovered/Resolved]
